FAERS Safety Report 17233757 (Version 1)
Quarter: 2020Q1

REPORT INFORMATION
  Report Type: Spontaneous
  Country: US (occurrence: US)
  Receive Date: 20200106
  Receipt Date: 20200106
  Transmission Date: 20200409
  Serious: Yes (Other)
  Sender: FDA-Public Use
  Company Number: US-EMCURE PHARMACEUTICALS LTD-2019-EPL-1265

PATIENT
  Age: 18 Year
  Sex: Female

DRUGS (5)
  1. ATROPINE SULFATE. [Concomitant]
     Active Substance: ATROPINE SULFATE
     Indication: CYCLOPLEGIA
     Dosage: UNK
     Route: 061
  2. BRIMONIDINE TARTRATE. [Concomitant]
     Active Substance: BRIMONIDINE TARTRATE
     Indication: ANGLE CLOSURE GLAUCOMA
     Dosage: UNK
     Route: 061
  3. TIMOLOL MALEATE. [Concomitant]
     Active Substance: TIMOLOL MALEATE
     Indication: ANGLE CLOSURE GLAUCOMA
     Dosage: UNK
  4. ACETAZOLAMIDE. [Suspect]
     Active Substance: ACETAZOLAMIDE
     Indication: ANGLE CLOSURE GLAUCOMA
     Dosage: 500 MILLIGRAM, BID
     Route: 048
  5. DORZOLAMIDE HYDROCHLORIDE. [Concomitant]
     Active Substance: DORZOLAMIDE HYDROCHLORIDE
     Indication: ANGLE CLOSURE GLAUCOMA
     Dosage: UNK

REACTIONS (2)
  - Choroidal infarction [Recovering/Resolving]
  - Retinal vascular occlusion [Recovering/Resolving]
